FAERS Safety Report 4374483-X (Version None)
Quarter: 2004Q2

REPORT INFORMATION
  Report Type: 
  Country: None (occurrence: None)
  Receive Date: 20040604
  Receipt Date: 20040524
  Transmission Date: 20050107
  Serious: Yes (Hospitalization, Other)
  Sender: FDA-Public Use
  Company Number: 2003004038

PATIENT
  Age: 44 Year
  Sex: Female
  Weight: 85.2762 kg

DRUGS (34)
  1. LIPITOR [Suspect]
     Indication: HYPERLIPIDAEMIA
     Dosage: 20 MG
     Dates: start: 19980116, end: 20010910
  2. VICODIN [Concomitant]
  3. SERTRALINE HCL [Concomitant]
  4. TORSEMIDE [Concomitant]
  5. POTASSIUM CHLORIDE [Concomitant]
  6. SALBUTAMOL (SALBUTAMOL) [Concomitant]
  7. CHROMAGEN (ASCORBIC ACID, CYANOCOBALAMIN, FERROUS FUMARATE, STOMACH DE [Concomitant]
  8. OMEPRAZOLE [Concomitant]
  9. CONJUGATED ESTROGENS [Concomitant]
  10. BUSPIRONE HCL [Concomitant]
  11. CITALOPRAM HYDROBROMIDE (CITALOPRAM HYDROBROMIDE) [Concomitant]
  12. BUPROPION HYDROCHLORIDE [Concomitant]
  13. CLONAZEPAM [Concomitant]
  14. PREDNISONE TAB [Concomitant]
  15. ESTRATEST HS (METHYLTESTOSTERONE, ESTROGENS ESTERIFIED) [Concomitant]
  16. RANITIDINE [Concomitant]
  17. FUROSEMIDE [Concomitant]
  18. GABAPENTIN [Concomitant]
  19. METAXALONE [Concomitant]
  20. VALACICLOVIR HYDROCHLORIDE (VALACICLOVIR HYDROCHLORIDE) [Concomitant]
  21. DIAZEPAM [Concomitant]
  22. LIBRAX [Concomitant]
  23. PSEUDOEPHEDRINE HCL [Concomitant]
  24. METRONIDAZOLE [Concomitant]
  25. DICYCLOVERINE (DICYCLOVERINE) [Concomitant]
  26. CLARITHROMYCIN [Concomitant]
  27. ESTRATEST HS (METHYLTESTOSTERONE, ESTROGENS ESTERIFIED) [Concomitant]
  28. ALPRAZOLAM [Concomitant]
  29. THEOPHYLLINE [Concomitant]
  30. KETOCONAZOLE (KETOCONAZOLE) [Concomitant]
  31. HISTEX HC (PSEUDOEPHEDRINE HYDROCHLORIDE, HYDROCODONE BITARTRATE, CARB [Concomitant]
  32. GUAIFENESIN (GUAIFENESIN) [Concomitant]
  33. AZITHROMYCIN [Concomitant]
  34. COMBIVENT [Concomitant]

REACTIONS (56)
  - ACARODERMATITIS [None]
  - ADRENAL ADENOMA [None]
  - ALPHA HAEMOLYTIC STREPTOCOCCAL INFECTION [None]
  - ANAEMIA [None]
  - ANXIETY [None]
  - ARNOLD-CHIARI MALFORMATION [None]
  - ARTHRALGIA [None]
  - ARTHRITIS [None]
  - ASTHMA [None]
  - ATRIAL FIBRILLATION [None]
  - BREAST PAIN [None]
  - BRONCHITIS [None]
  - CANDIDIASIS [None]
  - CERVICAL MYELOPATHY [None]
  - DIARRHOEA [None]
  - DIVERTICULITIS [None]
  - DRUG LEVEL BELOW THERAPEUTIC [None]
  - EMOTIONAL DISTRESS [None]
  - FALL [None]
  - FUNGAL CYSTITIS [None]
  - HAEMATOCHEZIA [None]
  - HAEMORRHOIDS [None]
  - HEADACHE [None]
  - HELICOBACTER INFECTION [None]
  - HYPERAEMIA [None]
  - HYPERCHOLESTEROLAEMIA [None]
  - HYPERSENSITIVITY [None]
  - HYPOKALAEMIA [None]
  - INFLAMMATION [None]
  - INGROWING NAIL [None]
  - JOINT SPRAIN [None]
  - LDL/HDL RATIO DECREASED [None]
  - LIGAMENT SPRAIN [None]
  - MITRAL VALVE INCOMPETENCE [None]
  - NEUROPATHY [None]
  - NUCLEAR MAGNETIC RESONANCE IMAGING ABNORMAL [None]
  - OTITIS MEDIA [None]
  - PALPITATIONS [None]
  - PANIC ATTACK [None]
  - PLEURISY [None]
  - PNEUMONIA [None]
  - RASH [None]
  - RECTAL HAEMORRHAGE [None]
  - RHABDOMYOLYSIS [None]
  - RHINITIS ALLERGIC [None]
  - SCOLIOSIS [None]
  - SINUSITIS [None]
  - SPINAL X-RAY ABNORMAL [None]
  - SPUTUM CULTURE POSITIVE [None]
  - STRESS INCONTINENCE [None]
  - SYNOVITIS [None]
  - TEMPERATURE INTOLERANCE [None]
  - TENOSYNOVITIS [None]
  - TENOSYNOVITIS STENOSANS [None]
  - VAGINITIS ATROPHIC [None]
  - WEIGHT INCREASED [None]
